FAERS Safety Report 4305015-X (Version None)
Quarter: 2004Q1

REPORT INFORMATION
  Report Type: 
  Country: None (occurrence: None)
  Receive Date: 20040226
  Receipt Date: 20040130
  Transmission Date: 20041129
  Serious: No
  Sender: FDA-Public Use
  Company Number: US-GLAXOSMITHKLINE-A0497386A

PATIENT
  Age: 39 Year
  Sex: Female
  Weight: 54.5 kg

DRUGS (1)
  1. WELLBUTRIN XL [Suspect]
     Dosage: 150MG TWICE PER DAY
     Route: 048

REACTIONS (2)
  - HEART RATE INCREASED [None]
  - TREMOR [None]
